FAERS Safety Report 24368670 (Version 10)
Quarter: 2025Q3

REPORT INFORMATION
  Report Type: Report from Study
  Country: KR (occurrence: KR)
  Receive Date: 20240926
  Receipt Date: 20250723
  Transmission Date: 20251020
  Serious: Yes (Hospitalization, Other)
  Sender: ABBVIE
  Company Number: KR-ABBVIE-5938582

PATIENT
  Age: 50 Year
  Sex: Male
  Weight: 85 kg

DRUGS (6)
  1. SKYRIZI [Suspect]
     Active Substance: RISANKIZUMAB-RZAA
     Indication: Psoriasis
     Route: 058
     Dates: start: 20230802, end: 20230802
  2. SKYRIZI [Suspect]
     Active Substance: RISANKIZUMAB-RZAA
     Route: 058
     Dates: start: 20230427, end: 20230427
  3. SKYRIZI [Suspect]
     Active Substance: RISANKIZUMAB-RZAA
     Route: 058
     Dates: start: 20220926, end: 20220926
  4. SKYRIZI [Suspect]
     Active Substance: RISANKIZUMAB-RZAA
     Route: 058
     Dates: start: 20221219, end: 20221219
  5. SKYRIZI [Suspect]
     Active Substance: RISANKIZUMAB-RZAA
     Route: 058
     Dates: start: 20220829, end: 20220829
  6. SKYRIZI [Suspect]
     Active Substance: RISANKIZUMAB-RZAA
     Route: 058
     Dates: start: 20231025, end: 20231025

REACTIONS (5)
  - Rectal cancer [Recovered/Resolved]
  - Insomnia [Recovered/Resolved with Sequelae]
  - Neurogenic bladder [Recovering/Resolving]
  - Chronic obstructive pulmonary disease [Recovering/Resolving]
  - Rectal cancer [Recovered/Resolved]

NARRATIVE: CASE EVENT DATE: 20230313
